FAERS Safety Report 7815609-2 (Version None)
Quarter: 2011Q4

REPORT INFORMATION
  Report Type: 
  Country: None (occurrence: None)
  Receive Date: 20111014
  Receipt Date: 20111006
  Transmission Date: 20120403
  Serious: Yes (Other)
  Sender: FDA-Public Use
  Company Number: AU-CELGENEUS-008-20785-11100811

PATIENT
  Age: 81 Year
  Sex: Female

DRUGS (1)
  1. THALOMID [Suspect]
     Dosage: 100 MILLIGRAM
     Route: 048

REACTIONS (5)
  - PRODUCT PACKAGING ISSUE [None]
  - DYSPNOEA [None]
  - CARDIAC DISORDER [None]
  - INSOMNIA [None]
  - JOINT SWELLING [None]
